FAERS Safety Report 18314315 (Version 1)
Quarter: 2020Q3

REPORT INFORMATION
  Report Type: Spontaneous
  Country: ES (occurrence: ES)
  Receive Date: 20200925
  Receipt Date: 20200925
  Transmission Date: 20201103
  Serious: Yes (Death, Other)
  Sender: FDA-Public Use
  Company Number: ES-SA-2020SA260713

PATIENT

DRUGS (2)
  1. SUTENT [Suspect]
     Active Substance: SUNITINIB MALATE
     Dosage: 50 MG, 14 DAYS OFF
     Dates: start: 20180905, end: 20181226
  2. CLEXANE [Suspect]
     Active Substance: ENOXAPARIN SODIUM
     Dosage: 80 MG/0.8 ML

REACTIONS (1)
  - Pulmonary embolism [Fatal]

NARRATIVE: CASE EVENT DATE: 20181226
